FAERS Safety Report 5252026-6 (Version None)
Quarter: 2007Q1

REPORT INFORMATION
  Report Type: 
  Country: None (occurrence: None)
  Receive Date: 20070222
  Receipt Date: 20070212
  Transmission Date: 20070707
  Serious: Yes (Other)
  Sender: FDA-Public Use
  Company Number: 430016K07USA

PATIENT
  Age: 36 Year
  Sex: Female

DRUGS (2)
  1. NOVANTRONE [Suspect]
     Indication: MULTIPLE SCLEROSIS
     Dosage: 6 IN 1 YEARS, INTRAVENOUS
     Route: 042
     Dates: start: 20051201, end: 20061201
  2. PROVIGIL [Concomitant]

REACTIONS (1)
  - EJECTION FRACTION DECREASED [None]
